FAERS Safety Report 6696906-3 (Version None)
Quarter: 2010Q2

REPORT INFORMATION
  Report Type: 
  Country: None (occurrence: None)
  Receive Date: 20100426
  Receipt Date: 20100413
  Transmission Date: 20101027
  Serious: Yes (Hospitalization, Other)
  Sender: FDA-Public Use
  Company Number: PHHY2010BR22968

PATIENT
  Sex: Female

DRUGS (1)
  1. DIOVAN [Suspect]
     Dosage: 80 MG, UNK

REACTIONS (5)
  - BLOOD CHOLESTEROL INCREASED [None]
  - BLOOD PRESSURE FLUCTUATION [None]
  - CARDIAC VALVE DISEASE [None]
  - MEMORY IMPAIRMENT [None]
  - SYNCOPE [None]
